FAERS Safety Report 7998788-6 (Version None)
Quarter: 2011Q4

REPORT INFORMATION
  Report Type: 
  Country: None (occurrence: None)
  Receive Date: 20111221
  Receipt Date: 20111214
  Transmission Date: 20120403
  Serious: Yes (Hospitalization)
  Sender: FDA-Public Use
  Company Number: US-ROXANE LABORATORIES, INC.-2011-RO-01809RO

PATIENT
  Age: 58 Year
  Sex: Female

DRUGS (8)
  1. AMLODIPINE BESYLATE [Suspect]
     Dosage: 10 MG
  2. ERGOCALCIFEROL [Suspect]
  3. OMEGA 3 FATTY ACIDS [Suspect]
     Dosage: 500 MG
  4. EPOETIN ALFA [Suspect]
  5. SEVELAMER CARBONATE [Suspect]
     Dosage: 2400 MG
  6. VALACYCLOVIR HYDROCHLORIDE [Suspect]
     Indication: HERPES ZOSTER
     Dosage: 3 G
     Route: 048
  7. CINACALCET HYDROCHLORIDE [Suspect]
     Dosage: 30 MG
  8. SIMVASTATIN [Suspect]
     Dosage: 80 MG

REACTIONS (2)
  - TOXIC ENCEPHALOPATHY [None]
  - METABOLIC ENCEPHALOPATHY [None]
